FAERS Safety Report 7337696-0 (Version None)
Quarter: 2011Q1

REPORT INFORMATION
  Report Type: 
  Country: None (occurrence: None)
  Receive Date: 20110308
  Receipt Date: 20110303
  Transmission Date: 20110831
  Serious: Yes (Hospitalization)
  Sender: FDA-Public Use
  Company Number: FR-GENZYME-THYM-1002297

PATIENT
  Sex: Female
  Weight: 28 kg

DRUGS (2)
  1. THYMOGLOBULIN [Suspect]
     Indication: RENAL TRANSPLANT
     Dosage: 1.5 MG/KG, QD
     Route: 042
     Dates: start: 20110130, end: 20110131
  2. THYMOGLOBULIN [Suspect]
     Dosage: 200 MG, ONCE
     Route: 042
     Dates: start: 20110201, end: 20110201

REACTIONS (6)
  - DRUG ADMINISTRATION ERROR [None]
  - THROMBOCYTOPENIA [None]
  - LEUKOPENIA [None]
  - OVERDOSE [None]
  - VOMITING [None]
  - PRURITUS [None]
